FAERS Safety Report 4744539-8 (Version None)
Quarter: 2005Q3

REPORT INFORMATION
  Report Type: 
  Country: None (occurrence: None)
  Receive Date: 20050809
  Receipt Date: 20050322
  Transmission Date: 20060218
  Serious: Yes (Life-Threatening)
  Sender: FDA-Public Use
  Company Number: 2005-126682-NL

PATIENT
  Age: 27 Year
  Sex: Female

DRUGS (6)
  1. MIRTAZAPINE [Suspect]
     Dosage: 7.5 MG DAILY ORAL
     Route: 048
  2. WELLBUTRIN XL [Suspect]
     Dosage: 450 MG DAILY ORAL
     Route: 048
  3. LORAZEPAM [Suspect]
     Dosage: 1 MG BID ORAL
     Route: 048
  4. ZOFRAN [Suspect]
     Dosage: 8 MG DAILY ORAL
     Route: 048
  5. QUETIAPINE FUMARATE [Suspect]
     Dosage: 150 MG DAILY ORAL, AT NIGHT
     Route: 048
  6. PROZAC [Suspect]
     Dosage: 100 MG DAILY ORAL
     Route: 048

REACTIONS (1)
  - CONVULSION [None]
